FAERS Safety Report 7949450-7 (Version None)
Quarter: 2011Q4

REPORT INFORMATION
  Report Type: 
  Country: None (occurrence: None)
  Receive Date: 20111130
  Receipt Date: 20111122
  Transmission Date: 20120403
  Serious: Yes (Other)
  Sender: FDA-Public Use
  Company Number: IE-GLAXOSMITHKLINE-B0762912A

PATIENT
  Age: 22 Year
  Sex: Female

DRUGS (2)
  1. MICROLITE [Suspect]
     Indication: CONTRACEPTION
  2. MALARONE [Suspect]
     Indication: IMMUNISATION

REACTIONS (3)
  - UNINTENDED PREGNANCY [None]
  - PREGNANCY [None]
  - DRUG INTERACTION [None]
